FAERS Safety Report 4769145-0 (Version None)
Quarter: 2005Q3

REPORT INFORMATION
  Report Type: 
  Country: None (occurrence: None)
  Receive Date: 20050912
  Receipt Date: 20050801
  Transmission Date: 20060218
  Serious: Yes (Hospitalization, Other)
  Sender: FDA-Public Use
  Company Number: 2005-01637

PATIENT
  Age: 63 Year
  Sex: Male
  Weight: 79 kg

DRUGS (15)
  1. VELCADE [Suspect]
     Indication: MULTIPLE MYELOMA
     Dosage: 1.30 MG/M2, INTRAVENOUS; SEE IMAGE
     Route: 042
     Dates: start: 20050501, end: 20050501
  2. VELCADE [Suspect]
     Indication: MULTIPLE MYELOMA
     Dosage: 1.30 MG/M2, INTRAVENOUS; SEE IMAGE
     Route: 042
     Dates: start: 20050607, end: 20050610
  3. VELCADE [Suspect]
     Indication: MULTIPLE MYELOMA
     Dosage: 1.30 MG/M2, INTRAVENOUS; SEE IMAGE
     Route: 042
     Dates: start: 20050726
  4. DOXIL [Concomitant]
  5. ACYCLOVIR [Concomitant]
  6. TOPROL-XL [Concomitant]
  7. LISINOPRIL [Concomitant]
  8. LEXAPROL (ESCITALOPRAM) [Concomitant]
  9. AREDIA [Concomitant]
  10. ADDERALL (DEXAMFETAMINE SULFATE, AMFETAMINE SULFATE, AMFETAMINE ASPART [Concomitant]
  11. LASIX [Concomitant]
  12. AMBIEN [Concomitant]
  13. COMPAZINE [Concomitant]
  14. ALLOPURINOL [Concomitant]
  15. ARANESP [Concomitant]

REACTIONS (7)
  - BURNING SENSATION [None]
  - HYPOAESTHESIA [None]
  - INFUSION SITE ERYTHEMA [None]
  - OEDEMA PERIPHERAL [None]
  - ORTHOSTATIC HYPOTENSION [None]
  - PANCYTOPENIA [None]
  - PARAESTHESIA [None]
